FAERS Safety Report 15831968 (Version 1)
Quarter: 2019Q1

REPORT INFORMATION
  Report Type: Spontaneous
  Country: GR (occurrence: GR)
  Receive Date: 20190116
  Receipt Date: 20190116
  Transmission Date: 20190417
  Serious: No
  Sender: FDA-Public Use
  Company Number: GR-ALKEM LABORATORIES LIMITED-GR-ALKEM-2018-10043

PATIENT
  Age: 5 Year
  Sex: Male

DRUGS (4)
  1. MEROPENEM. [Concomitant]
     Active Substance: MEROPENEM
     Indication: PNEUMONIA PNEUMOCOCCAL
  2. LINEZOLID. [Suspect]
     Active Substance: LINEZOLID
     Indication: PNEUMONIA
     Dosage: 30 MG/KG, QD
     Route: 042
  3. MEROPENEM. [Concomitant]
     Active Substance: MEROPENEM
     Indication: PNEUMONIA
     Dosage: UNK
     Route: 042
  4. LINEZOLID. [Suspect]
     Active Substance: LINEZOLID
     Indication: PNEUMONIA PNEUMOCOCCAL

REACTIONS (2)
  - Tongue discolouration [Recovered/Resolved]
  - Tooth discolouration [Recovered/Resolved]
